FAERS Safety Report 5234277-X (Version None)
Quarter: 2007Q1

REPORT INFORMATION
  Report Type: 
  Country: None (occurrence: None)
  Receive Date: 20070209
  Receipt Date: 20070130
  Transmission Date: 20070707
  Serious: Yes (Hospitalization)
  Sender: FDA-Public Use
  Company Number: US-JNJFOC-20060500976

PATIENT
  Age: 48 Year
  Sex: Female

DRUGS (3)
  1. REMICADE [Suspect]
     Indication: CROHN'S DISEASE
     Route: 042
  2. 6-MP [Concomitant]
  3. ASACOL [Concomitant]

REACTIONS (11)
  - BALANCE DISORDER [None]
  - CEREBELLAR ATROPHY [None]
  - FUNGAL INFECTION [None]
  - HEADACHE [None]
  - HOT FLUSH [None]
  - INNER EAR DISORDER [None]
  - LIP SWELLING [None]
  - RASH [None]
  - SINUS DISORDER [None]
  - VISUAL DISTURBANCE [None]
  - WEIGHT DECREASED [None]
